FAERS Safety Report 6175476-2 (Version None)
Quarter: 2009Q2

REPORT INFORMATION
  Report Type: 
  Country: None (occurrence: None)
  Receive Date: 20090429
  Receipt Date: 20090415
  Transmission Date: 20091009
  Serious: Yes (Death)
  Sender: FDA-Public Use
  Company Number: BAYER CASE ID: 200911269BNE

PATIENT
  Sex: Male

DRUGS (3)
  1. FLUDARABINE VS CHLORAMBUCIL (UNCODEABLE 'INVESTIGATIONAL DRUG^) [Suspect]
     Dosage: NI
  2. ENOXAPARIN SODIUM [Concomitant]
  3. BLOOD (NOS) (BLOOD TRANSFUSION, AUXILIARY PRODUCTS) [Concomitant]

REACTIONS (1)
  - DEATH [None]
